FAERS Safety Report 4874821-5 (Version None)
Quarter: 2006Q1

REPORT INFORMATION
  Report Type: 
  Country: None (occurrence: None)
  Receive Date: 20060103
  Receipt Date: 20060103
  Transmission Date: 20060701
  Serious: Yes (Hospitalization)
  Sender: FDA-Public Use
  Company Number: None

PATIENT
  Sex: Female
  Weight: 62.3 kg

DRUGS (2)
  1. AMIFOSTINE [Suspect]
     Indication: NEOPLASM
     Dosage: SEE IMAGE
     Route: 057
     Dates: start: 20051214
  2. AMIFOSTINE [Suspect]
     Indication: NEOPLASM
     Dosage: SEE IMAGE
     Route: 057
     Dates: start: 20051221

REACTIONS (4)
  - ARTHRITIS BACTERIAL [None]
  - MONARTHRITIS [None]
  - PATHOGEN RESISTANCE [None]
  - STAPHYLOCOCCAL INFECTION [None]
